FAERS Safety Report 12280867 (Version 1)
Quarter: 2016Q2

REPORT INFORMATION
  Report Type: Spontaneous
  Country: US (occurrence: None)
  Receive Date: 20160418
  Receipt Date: 20160418
  Transmission Date: 20160815
  Serious: No
  Sender: FDA-Public Use
  Company Number: None

PATIENT
  Age: 31 Year
  Sex: Female
  Weight: 88.45 kg

DRUGS (3)
  1. AMPHETAMINE CAP 20MG ER, 20 MG ACTAVIS [Suspect]
     Active Substance: AMPHETAMINE ASPARTATE\AMPHETAMINE SULFATE\DEXTROAMPHETAMINE SACCHARATE\DEXTROAMPHETAMINE SULFATE
     Indication: ATTENTION DEFICIT/HYPERACTIVITY DISORDER
     Route: 048
     Dates: start: 20160413, end: 20160415
  2. EFFEXOR XR [Concomitant]
     Active Substance: VENLAFAXINE HYDROCHLORIDE
  3. KLONOPIN [Concomitant]
     Active Substance: CLONAZEPAM

REACTIONS (5)
  - Product substitution issue [None]
  - Mental impairment [None]
  - Activities of daily living impaired [None]
  - Drug ineffective [None]
  - Disturbance in attention [None]

NARRATIVE: CASE EVENT DATE: 20160413
